FAERS Safety Report 18552934 (Version 1)
Quarter: 2020Q4

REPORT INFORMATION
  Report Type: Spontaneous
  Country: CA (occurrence: CA)
  Receive Date: 20201127
  Receipt Date: 20201127
  Transmission Date: 20210114
  Serious: Yes (Hospitalization, Other)
  Sender: FDA-Public Use
  Company Number: CA-SAMSUNG BIOEPIS-SB-2020-35028

PATIENT
  Age: 64 Year
  Sex: Female

DRUGS (4)
  1. INFLIXIMAB [Suspect]
     Active Substance: INFLIXIMAB
     Indication: CROHN^S DISEASE
     Route: 042
  2. IBRANCE [Concomitant]
     Active Substance: PALBOCICLIB
     Indication: CHEMOTHERAPY
     Dosage: UNKNOWN
     Route: 048
  3. PREDNISONE. [Concomitant]
     Active Substance: PREDNISONE
     Indication: PRODUCT USED FOR UNKNOWN INDICATION
     Dosage: UNKNOWN
     Route: 065
  4. PREDNISONE. [Concomitant]
     Active Substance: PREDNISONE
     Dosage: UNKNOWN
     Route: 048

REACTIONS (13)
  - Flatulence [Recovered/Resolved]
  - Pneumonia [Recovered/Resolved]
  - Pneumonitis [Recovered/Resolved]
  - Off label use [Recovered/Resolved]
  - Abdominal pain [Recovered/Resolved]
  - Heart rate increased [Recovered/Resolved]
  - Intentional product use issue [Recovered/Resolved]
  - Blood pressure increased [Recovered/Resolved]
  - Drug ineffective [Recovered/Resolved]
  - Arthralgia [Recovered/Resolved]
  - Dyspnoea [Recovered/Resolved]
  - Emphysema [Recovered/Resolved]
  - Drug level decreased [Recovered/Resolved]
